FAERS Safety Report 6453985-6 (Version None)
Quarter: 2009Q4

REPORT INFORMATION
  Report Type: 
  Country: None (occurrence: None)
  Receive Date: 20091102
  Receipt Date: 20091102
  Transmission Date: 20100525
  Serious: Yes (Other)
  Sender: FDA-Public Use
  Company Number: AUR-APL-2009-01177

PATIENT
  Age: 53 Year
  Sex: Female

DRUGS (2)
  1. RIBAVIRIN [Suspect]
     Indication: HEPATITIS C
  2. PEGINTERFERON-[ALPHA] [Suspect]
     Indication: HEPATITIS C

REACTIONS (4)
  - ANTIPHOSPHOLIPID SYNDROME [None]
  - COAGULATION FACTOR VIII LEVEL INCREASED [None]
  - CUTANEOUS SARCOIDOSIS [None]
  - THROMBOPHLEBITIS SUPERFICIAL [None]
